FAERS Safety Report 9554590 (Version 2)
Quarter: 2013Q3

REPORT INFORMATION
  Report Type: Spontaneous
  Country: AU (occurrence: AU)
  Receive Date: 20130925
  Receipt Date: 20130925
  Transmission Date: 20140515
  Serious: Yes (Death)
  Sender: FDA-Public Use
  Company Number: AU-BAXTER-2013BAX036392

PATIENT
  Age: 61 Year
  Sex: Male

DRUGS (3)
  1. DIANEAL PD-4 PERITONEAL DIALYSIS SOLUTION WITH 2.5% W_V GLUCOSE LOW CA [Suspect]
     Indication: PERITONEAL DIALYSIS
     Route: 033
     Dates: end: 20130914
  2. DIANEAL PD-4 PERITONEAL DIALYSIS SOLUTION WITH 4.25% W_V GLUCOSE LOW C [Suspect]
     Indication: PERITONEAL DIALYSIS
     Route: 033
     Dates: end: 20130914
  3. EXTRANEAL 7.5% W_V ICODEXTRIN PERITONEAL DIALYSIS SOLUTION BAG AHB5546 [Suspect]
     Indication: PERITONEAL DIALYSIS
     Route: 033
     Dates: end: 20130914

REACTIONS (2)
  - Death [Fatal]
  - Malaise [Unknown]
